FAERS Safety Report 6784152-4 (Version None)
Quarter: 2010Q2

REPORT INFORMATION
  Report Type: 
  Country: None (occurrence: None)
  Receive Date: 20100622
  Receipt Date: 20100611
  Transmission Date: 20101027
  Serious: Yes (Hospitalization)
  Sender: FDA-Public Use
  Company Number: JP-JNJFOC-20090902263

PATIENT
  Sex: Female
  Weight: 59 kg

DRUGS (24)
  1. DOXORUBICIN HCL [Suspect]
     Indication: OVARIAN CANCER RECURRENT
     Route: 042
  2. DOXORUBICIN HCL [Suspect]
     Route: 042
  3. FAMOTIDINE [Concomitant]
     Indication: PROPHYLAXIS
     Route: 048
  4. PURSENNID [Concomitant]
     Indication: CONSTIPATION
     Route: 048
  5. PREDONINE [Concomitant]
     Route: 048
  6. TALION [Concomitant]
     Route: 048
  7. HALCION [Concomitant]
     Indication: INSOMNIA
     Route: 048
  8. BONALON [Concomitant]
     Indication: OSTEOPOROSIS
     Route: 048
  9. CALCIUM LACTATE [Concomitant]
     Route: 048
  10. CALCITRIOL [Concomitant]
     Indication: OSTEOPOROSIS
     Route: 048
  11. AMITRIPTYLINE HCL [Concomitant]
     Indication: DEPRESSION
     Route: 048
  12. MOHRUS TAPE [Concomitant]
     Indication: ARTHRITIS
     Route: 062
  13. PYRINAZIN [Concomitant]
     Indication: ARTHRITIS
     Route: 048
  14. BIOFERMIN [Concomitant]
     Indication: DIARRHOEA
     Route: 048
  15. INDOMETHACIN SODIUM [Concomitant]
     Indication: ARTHRITIS
     Route: 061
  16. AZUNOL [Concomitant]
     Indication: PROPHYLAXIS
     Route: 049
  17. KARY UNI [Concomitant]
     Indication: CATARACT
     Route: 031
  18. PASTARON [Concomitant]
     Indication: PROPHYLAXIS
     Route: 061
  19. LAMISIL [Concomitant]
     Indication: TINEA INFECTION
     Route: 061
  20. ALMETA [Concomitant]
     Indication: RASH
     Route: 061
  21. DEXALTIN [Concomitant]
     Indication: STOMATITIS
     Route: 049
  22. HACHIAZULE [Concomitant]
     Indication: PROPHYLAXIS
     Route: 049
  23. TIMOPTOL [Concomitant]
     Indication: GLAUCOMA
     Route: 031
  24. SERETIDE [Concomitant]
     Indication: ASTHMA
     Route: 055

REACTIONS (1)
  - ASTHMA [None]
